FAERS Safety Report 17849607 (Version 1)
Quarter: 2020Q2

REPORT INFORMATION
  Report Type: Spontaneous
  Country: US (occurrence: US)
  Receive Date: 20200602
  Receipt Date: 20200602
  Transmission Date: 20200714
  Serious: No
  Sender: FDA-Public Use
  Company Number: US-PFIZER INC-2020209789

PATIENT
  Age: 8 Year
  Sex: Male

DRUGS (2)
  1. GENOTROPIN [Suspect]
     Active Substance: SOMATROPIN
     Indication: BONE DEVELOPMENT ABNORMAL
     Dosage: 1.1 MG, 1X/DAY (INJECTION EVERY NIGHT)
     Dates: start: 201708, end: 2020
  2. LEVOTHYROXINE. [Concomitant]
     Active Substance: LEVOTHYROXINE
     Indication: BONE DEVELOPMENT ABNORMAL
     Dosage: 0.025 MG, 1X/DAY (EVERY MORNING BY MOUTH)
     Route: 048
     Dates: start: 2014

REACTIONS (2)
  - Device use issue [Unknown]
  - Drug dose omission by device [Unknown]

NARRATIVE: CASE EVENT DATE: 20200525
